FAERS Safety Report 22777865 (Version 3)
Quarter: 2024Q1

REPORT INFORMATION
  Report Type: Spontaneous
  Country: GB (occurrence: GB)
  Receive Date: 20230802
  Receipt Date: 20240131
  Transmission Date: 20240410
  Serious: Yes (Life-Threatening, Hospitalization, Other)
  Sender: FDA-Public Use
  Company Number: GB-SUN PHARMACEUTICAL INDUSTRIES LTD-2023R1-394706

PATIENT
  Age: 48 Year
  Sex: Female
  Weight: 57 kg

DRUGS (8)
  1. ACETAMINOPHEN [Suspect]
     Active Substance: ACETAMINOPHEN
     Indication: Analgesic therapy
     Dosage: 1 G FOUR TIMES DAILY
     Route: 042
  2. ACETAMINOPHEN [Suspect]
     Active Substance: ACETAMINOPHEN
     Dosage: 1 G FOUR TIMES DAILY
     Route: 048
  3. RIVAROXABAN [Suspect]
     Active Substance: RIVAROXABAN
     Indication: Deep vein thrombosis
     Dosage: 20 MILLIGRAM, DAILY
     Route: 048
  4. BETAINE [Concomitant]
     Active Substance: BETAINE
     Indication: Homocystinuria
     Dosage: 6 GRAM, TID
     Route: 065
  5. CYANOCOBALAMIN [Concomitant]
     Active Substance: CYANOCOBALAMIN
     Indication: Homocystinuria
     Dosage: 50 MILLIGRAM, DAILY
     Route: 065
  6. FENTANYL [Concomitant]
     Active Substance: FENTANYL\FENTANYL CITRATE
     Indication: Analgesic therapy
     Dosage: UNK UNK, DAILY
     Route: 065
  7. FOLIC ACID [Concomitant]
     Active Substance: FOLIC ACID
     Indication: Homocystinuria
     Dosage: 5 MILLIGRAM, DAILY
     Route: 065
  8. GABAPENTIN [Concomitant]
     Active Substance: GABAPENTIN
     Indication: Analgesic therapy
     Dosage: 100 MILLIGRAM, TID
     Route: 065

REACTIONS (13)
  - Coagulopathy [Recovering/Resolving]
  - Hypoglycaemia [Recovered/Resolved]
  - Hepatic steatosis [Recovered/Resolved]
  - Ileus [Recovering/Resolving]
  - Epistaxis [Recovering/Resolving]
  - Hepatic encephalopathy [Recovered/Resolved]
  - Hepatic fibrosis [Unknown]
  - Haematemesis [Unknown]
  - Acute hepatic failure [Recovered/Resolved]
  - Pulmonary oedema [Recovered/Resolved]
  - Asterixis [Recovered/Resolved]
  - Jaundice [Recovered/Resolved]
  - Cholestasis [Recovered/Resolved]
